FAERS Safety Report 4539409-4 (Version None)
Quarter: 2004Q4

REPORT INFORMATION
  Report Type: 
  Country: None (occurrence: None)
  Receive Date: 20041227
  Receipt Date: 20041227
  Transmission Date: 20050328
  Serious: Yes (Other)
  Sender: FDA-Public Use
  Company Number: None

PATIENT
  Sex: Female

DRUGS (4)
  1. COUMADIN [Suspect]
     Indication: AORTIC VALVE REPLACEMENT
     Dosage: 1 TABLET BY MOUTH EVERY OTHER DAY [LIFETIME
  2. COUMADIN [Suspect]
     Indication: CHRONIC OBSTRUCTIVE AIRWAYS DISEASE
     Dosage: 1 TABLET BY MOUTH EVERY OTHER DAY [LIFETIME
  3. COUMADIN [Suspect]
     Indication: RHEUMATOID ARTHRITIS
     Dosage: 1 TABLET BY MOUTH EVERY OTHER DAY [LIFETIME
  4. COUMADIN [Suspect]
     Indication: SUPRAVENTRICULAR TACHYCARDIA
     Dosage: 1 TABLET BY MOUTH EVERY OTHER DAY [LIFETIME

REACTIONS (2)
  - FEELING COLD [None]
  - NIGHT SWEATS [None]
